FAERS Safety Report 16612676 (Version 1)
Quarter: 2019Q3

REPORT INFORMATION
  Report Type: Spontaneous
  Country: US (occurrence: US)
  Receive Date: 20190722
  Receipt Date: 20190722
  Transmission Date: 20191004
  Serious: No
  Sender: FDA-Public Use
  Company Number: US-009507513-1907USA004300

PATIENT
  Sex: Female

DRUGS (1)
  1. REMERON SOLTAB [Suspect]
     Active Substance: MIRTAZAPINE
     Dosage: 15 MILLIGRAM, ONCE DAILY AT NIGHT, ROUTE: BY MOUTH
     Route: 048

REACTIONS (1)
  - Somnolence [Unknown]
